FAERS Safety Report 6210960-4 (Version None)
Quarter: 2009Q2

REPORT INFORMATION
  Report Type: 
  Country: None (occurrence: None)
  Receive Date: 20090528
  Receipt Date: 20090528
  Transmission Date: 20091009
  Serious: Yes (Other)
  Sender: FDA-Public Use
  Company Number: None

PATIENT
  Age: 47 Year
  Sex: Male

DRUGS (1)
  1. DURAPREP [Suspect]

REACTIONS (2)
  - APPLICATION SITE EXFOLIATION [None]
  - APPLICATION SITE VESICLES [None]
